FAERS Safety Report 11121742 (Version 2)
Quarter: 2015Q2

REPORT INFORMATION
  Report Type: Spontaneous
  Country: DE (occurrence: DE)
  Receive Date: 20150519
  Receipt Date: 20150527
  Transmission Date: 20150821
  Serious: Yes (Disabling)
  Sender: FDA-Public Use
  Company Number: DE-PFIZER INC-2015159481

PATIENT
  Age: 48 Year
  Sex: Female

DRUGS (2)
  1. LYRICA [Suspect]
     Active Substance: PREGABALIN
     Indication: PAIN
  2. LYRICA [Suspect]
     Active Substance: PREGABALIN
     Indication: ANXIETY DISORDER
     Dosage: 125 MG 1X IN THE MORNING, 1X IN THE EVENING
     Dates: start: 20150305

REACTIONS (10)
  - Pain [Unknown]
  - Weight increased [Unknown]
  - Fluid retention [Unknown]
  - Lymphostasis [Unknown]
  - Faeces hard [Unknown]
  - Oedema [Unknown]
  - Anal haemorrhage [Unknown]
  - Drug ineffective [Unknown]
  - Constipation [Unknown]
  - Tardive dyskinesia [Unknown]

NARRATIVE: CASE EVENT DATE: 2015
